FAERS Safety Report 5968281-0 (Version None)
Quarter: 2008Q4

REPORT INFORMATION
  Report Type: 
  Country: None (occurrence: None)
  Receive Date: 20081119
  Receipt Date: 20080827
  Transmission Date: 20090506
  Serious: No
  Sender: FDA-Public Use
  Company Number: WAES 0808USA05029

PATIENT
  Age: 65 Year
  Sex: Female
  Weight: 102.5129 kg

DRUGS (5)
  1. JANUVIA [Suspect]
     Indication: DIABETES MELLITUS
     Dosage: 100 MG/DAILY/PO
     Route: 048
     Dates: start: 20080127
  2. LASIX [Concomitant]
  3. LEVOXYL [Concomitant]
  4. PLAVIX [Concomitant]
  5. POTASSIUM (UNSPECIFIED) [Concomitant]

REACTIONS (2)
  - HAEMOGLOBIN DECREASED [None]
  - SYNCOPE [None]
